FAERS Safety Report 10787134 (Version 2)
Quarter: 2015Q1

REPORT INFORMATION
  Report Type: Spontaneous
  Country: US (occurrence: US)
  Receive Date: 20150211
  Receipt Date: 20150212
  Transmission Date: 20150721
  Serious: No
  Sender: FDA-Public Use
  Company Number: US-GLAXOSMITHKLINE-A1062587A

PATIENT

DRUGS (6)
  1. LATUDA [Concomitant]
     Active Substance: LURASIDONE HYDROCHLORIDE
  2. ZIPRASIDONE [Concomitant]
     Active Substance: ZIPRASIDONE
  3. ABILIFY [Concomitant]
     Active Substance: ARIPIPRAZOLE
  4. LAMICTAL [Suspect]
     Active Substance: LAMOTRIGINE
     Indication: BIPOLAR DISORDER
  5. LAMICTAL [Suspect]
     Active Substance: LAMOTRIGINE
     Indication: NERVOUS SYSTEM DISORDER
     Dosage: 200 MG TABLETS, UNKNOWN DOSINGPREVIOUSLY RECEIVED 25 MG AND 100 MG TABLETS
     Route: 065
     Dates: start: 20130522
  6. OLANZAPINE. [Concomitant]
     Active Substance: OLANZAPINE

REACTIONS (1)
  - Exposure during pregnancy [Unknown]
